FAERS Safety Report 4538445-1 (Version None)
Quarter: 2004Q4

REPORT INFORMATION
  Report Type: 
  Country: None (occurrence: None)
  Receive Date: 20041227
  Receipt Date: 20020722
  Transmission Date: 20050328
  Serious: Yes (Other)
  Sender: FDA-Public Use
  Company Number: EMADSS2002002889

PATIENT
  Sex: Male
  Weight: 90 kg

DRUGS (7)
  1. RISPERDAL [Suspect]
     Route: 049
     Dates: start: 20011101, end: 20020620
  2. BETAHISTINE [Concomitant]
     Indication: TINNITUS
     Route: 065
  3. HYDROXYZIDE [Concomitant]
     Route: 065
  4. DEPIXOL [Concomitant]
     Indication: SCHIZOPHRENIA
     Route: 065
     Dates: start: 19810101
  5. VENLAFAXINE HCL [Concomitant]
     Indication: DEPRESSION
     Route: 065
     Dates: start: 20000101
  6. BENDROFLUAZIDE [Concomitant]
     Indication: HYPERTENSION
     Route: 065
     Dates: start: 19950101
  7. PROCYCLIDINE HYDROCHLORIDE 2MG TAB [Concomitant]
     Route: 065

REACTIONS (1)
  - WHITE BLOOD CELL COUNT DECREASED [None]
